FAERS Safety Report 5915206-X (Version None)
Quarter: 2008Q4

REPORT INFORMATION
  Report Type: 
  Country: None (occurrence: None)
  Receive Date: 20081010
  Receipt Date: 20081007
  Transmission Date: 20090506
  Serious: Yes (Life-Threatening, Hospitalization)
  Sender: FDA-Public Use
  Company Number: FR-JNJFOC-20081001911

PATIENT
  Sex: Male

DRUGS (1)
  1. IXPRIM [Suspect]
     Indication: PAIN IN EXTREMITY
     Route: 048

REACTIONS (6)
  - CONFUSIONAL STATE [None]
  - FACTOR V DEFICIENCY [None]
  - HAEMATOCRIT DECREASED [None]
  - HAEMOGLOBIN DECREASED [None]
  - HEPATITIS FULMINANT [None]
  - LACTIC ACIDOSIS [None]
